FAERS Safety Report 12554521 (Version 1)
Quarter: 2016Q3

REPORT INFORMATION
  Report Type: Spontaneous
  Country: US (occurrence: US)
  Receive Date: 20160713
  Receipt Date: 20160713
  Transmission Date: 20161109
  Serious: No
  Sender: FDA-Public Use
  Company Number: US-ROCHE-1660030

PATIENT
  Age: 69 Year
  Sex: Female

DRUGS (1)
  1. BONVIVA [Suspect]
     Active Substance: IBANDRONATE SODIUM
     Indication: OSTEOPOROSIS
     Route: 065
     Dates: start: 201409, end: 201412

REACTIONS (7)
  - Tooth loss [Unknown]
  - Temporomandibular joint syndrome [Unknown]
  - Pain in jaw [Unknown]
  - Bruxism [Unknown]
  - Tinnitus [Unknown]
  - Ear pain [Unknown]
  - Gastrooesophageal reflux disease [Unknown]
